FAERS Safety Report 5792254-4 (Version None)
Quarter: 2008Q2

REPORT INFORMATION
  Report Type: 
  Country: None (occurrence: None)
  Receive Date: 20080626
  Receipt Date: 20080514
  Transmission Date: 20081010
  Serious: No
  Sender: FDA-Public Use
  Company Number: US-ASTRAZENECA-2008UW03344

PATIENT
  Age: 75 Year
  Sex: Female
  Weight: 74.8 kg

DRUGS (3)
  1. PULMICORT FLEXHALER [Suspect]
     Indication: ASTHMA
     Route: 055
     Dates: start: 20080201, end: 20080216
  2. ALBUTEROL [Concomitant]
  3. MENEST [Concomitant]

REACTIONS (2)
  - DIZZINESS [None]
  - HEADACHE [None]
